FAERS Safety Report 13718919 (Version 2)
Quarter: 2017Q3

REPORT INFORMATION
  Report Type: Spontaneous
  Country: US (occurrence: US)
  Receive Date: 20170705
  Receipt Date: 20170922
  Transmission Date: 20171127
  Serious: No
  Sender: FDA-Public Use
  Company Number: US-JNJFOC-20170608025

PATIENT
  Sex: Female

DRUGS (1)
  1. FENTANYL TRANSDERMAL SYSTEM [Suspect]
     Active Substance: FENTANYL
     Indication: PRODUCT USED FOR UNKNOWN INDICATION
     Dosage: DRUG WAS STARTED 15 YEARS AGO AT THE TIME OF THE REPORT
     Route: 062

REACTIONS (3)
  - Pain [Unknown]
  - Product colour issue [Unknown]
  - Adverse event [Unknown]

NARRATIVE: CASE EVENT DATE: 2017
